FAERS Safety Report 4303407-6 (Version None)
Quarter: 2004Q1

REPORT INFORMATION
  Report Type: 
  Country: None (occurrence: None)
  Receive Date: 20040224
  Receipt Date: 20040216
  Transmission Date: 20041129
  Serious: Yes (Life-Threatening, Hospitalization)
  Sender: FDA-Public Use
  Company Number: WAES 0402GBR00166

PATIENT
  Sex: Male

DRUGS (4)
  1. AMLODIPINE MALEATE [Concomitant]
     Route: 048
  2. ASPIRIN [Concomitant]
     Route: 048
     Dates: start: 19990101
  3. ENOXAPARIN SODIUM [Concomitant]
     Route: 058
  4. ZOCOR [Suspect]
     Route: 048

REACTIONS (1)
  - THROMBOTIC THROMBOCYTOPENIC PURPURA [None]
